FAERS Safety Report 4748190-5 (Version None)
Quarter: 2005Q3

REPORT INFORMATION
  Report Type: 
  Country: None (occurrence: None)
  Receive Date: 20050818
  Receipt Date: 20050805
  Transmission Date: 20060218
  Serious: Yes (Hospitalization)
  Sender: FDA-Public Use
  Company Number: GB-JNJFOC-20050801839

PATIENT
  Age: 46 Year
  Sex: Female

DRUGS (3)
  1. TRAMADOL HCL [Suspect]
     Indication: NEUROPATHIC PAIN
     Route: 048
  2. GABAPENTIN [Concomitant]
     Indication: NEUROPATHIC PAIN
     Route: 048
  3. AMITRIPTYLINE HCL [Concomitant]
     Route: 048

REACTIONS (1)
  - VENTRICULAR TACHYCARDIA [None]
